FAERS Safety Report 6979822 (Version 2)
Quarter: 2014Q1

REPORT INFORMATION
  Report Type: Spontaneous
  Country: JP (occurrence: JP)
  Receive Date: 20090428
  Receipt Date: 20140226
  Transmission Date: 20141002
  Serious: Yes (Death, Hospitalization)
  Sender: FDA-Public Use
  Company Number: JP-PFIZER INC-2009199276

PATIENT
  Age: 68 Year
  Sex: Female

DRUGS (3)
  1. ADRIACIN [Suspect]
     Indication: BREAST CANCER
     Dosage: 50 MG/M2, ON DAY 1, EVERY 3 WEEKS
     Route: 042
  2. 5-FU [Suspect]
     Indication: BREAST CANCER
     Dosage: 500 MG/M2, ON DAYS 1 AND 8, EVERY 3 WEEKS
     Route: 042
  3. ENDOXAN [Suspect]
     Indication: BREAST CANCER
     Dosage: 500 MG/M2, ON DAY 1, EVERY 3 WEEKS
     Route: 042

REACTIONS (1)
  - Hepatitis B [Fatal]
